FAERS Safety Report 8218213-X (Version None)
Quarter: 2012Q1

REPORT INFORMATION
  Report Type: 
  Country: None (occurrence: None)
  Receive Date: 20120316
  Receipt Date: 20120316
  Transmission Date: 20120608
  Serious: No
  Sender: FDA-Public Use
  Company Number: None

PATIENT
  Sex: Male
  Weight: 94.5 kg

DRUGS (2)
  1. ZEGERID [Suspect]
     Indication: GASTROOESOPHAGEAL REFLUX DISEASE
     Dosage: 40/1100MG QD ORALLY
     Route: 048
     Dates: start: 20120208
  2. ZEGERID [Suspect]
     Indication: BARRETT'S OESOPHAGUS
     Dosage: 40/1100MG QD ORALLY
     Route: 048
     Dates: start: 20120208

REACTIONS (2)
  - PRODUCT SUBSTITUTION ISSUE [None]
  - DRUG INEFFECTIVE [None]
